FAERS Safety Report 12972012 (Version 1)
Quarter: 2016Q4

REPORT INFORMATION
  Report Type: Spontaneous
  Country: US (occurrence: US)
  Receive Date: 20161124
  Receipt Date: 20161124
  Transmission Date: 20170207
  Serious: Yes (Life-Threatening, Hospitalization, Other)
  Sender: FDA-Public Use
  Company Number: US-SUN PHARMACEUTICAL INDUSTRIES LTD-2016US-127768

PATIENT
  Age: 46 Year
  Sex: Male

DRUGS (1)
  1. ACETAMINOPHEN. [Suspect]
     Active Substance: ACETAMINOPHEN
     Indication: PRODUCT USED FOR UNKNOWN INDICATION
     Dosage: 6-7 G/DAY (FOR ABOUT A WEEK)
     Route: 065

REACTIONS (4)
  - Haemolytic anaemia [Unknown]
  - Hepatotoxicity [Unknown]
  - Overdose [Unknown]
  - Toxicity to various agents [Unknown]
